FAERS Safety Report 19288115 (Version 1)
Quarter: 2021Q2

REPORT INFORMATION
  Report Type: Other
  Country: US (occurrence: US)
  Receive Date: 20210521
  Receipt Date: 20210521
  Transmission Date: 20210717
  Serious: No
  Sender: FDA-Public Use
  Company Number: US-ROCHE-2830688

PATIENT
  Age: 51 Year
  Sex: Female
  Weight: 104.42 kg

DRUGS (2)
  1. OCREVUS [Suspect]
     Active Substance: OCRELIZUMAB
     Dosage: 300 MG IV ONCE + REPEAT THIS DOSE 2 WEEKS LATER AND THEN CONTINUE EVERY SIX MONTHS?PER (CUT?OFF)
     Route: 042
  2. OCREVUS [Suspect]
     Active Substance: OCRELIZUMAB
     Indication: MULTIPLE SCLEROSIS
     Dosage: DATE OF TREATMENT: 01/OCT/2019, 11/NOV/2020, 27/APR/2020,.
     Route: 042
     Dates: start: 2019

REACTIONS (3)
  - COVID-19 [Recovered/Resolved]
  - Urinary incontinence [Not Recovered/Not Resolved]
  - Cough [Not Recovered/Not Resolved]

NARRATIVE: CASE EVENT DATE: 202104
